FAERS Safety Report 20346907 (Version 1)
Quarter: 2022Q1

REPORT INFORMATION
  Report Type: Spontaneous
  Country: US (occurrence: US)
  Receive Date: 20220118
  Receipt Date: 20220118
  Transmission Date: 20220423
  Serious: Yes (Other)
  Sender: FDA-Public Use
  Company Number: US-ALLERGAN-2202227US

PATIENT
  Sex: Female

DRUGS (2)
  1. INFED [Suspect]
     Active Substance: IRON DEXTRAN
     Indication: Product used for unknown indication
     Dosage: 25 MG
     Route: 042
     Dates: start: 20211222, end: 20211222
  2. METHYLPREDNISOLONE [Concomitant]
     Active Substance: METHYLPREDNISOLONE
     Dosage: 125 MG
     Route: 042
     Dates: start: 20211222, end: 20211222

REACTIONS (7)
  - Oxygen saturation decreased [Recovered/Resolved]
  - Drug hypersensitivity [Recovered/Resolved]
  - Product preparation issue [Unknown]
  - Hypotension [Recovered/Resolved]
  - Chest pain [Recovered/Resolved]
  - Chest discomfort [Recovered/Resolved]
  - Nausea [Recovered/Resolved]

NARRATIVE: CASE EVENT DATE: 20211222
